FAERS Safety Report 13741669 (Version 1)
Quarter: 2017Q3

REPORT INFORMATION
  Report Type: Spontaneous
  Country: ES (occurrence: ES)
  Receive Date: 20170711
  Receipt Date: 20170711
  Transmission Date: 20171127
  Serious: Yes (Other)
  Sender: FDA-Public Use
  Company Number: ES-MYLANLABS-2017M1040593

PATIENT

DRUGS (5)
  1. DOLUTEGRAVIR [Interacting]
     Active Substance: DOLUTEGRAVIR
     Indication: HIV INFECTION
     Route: 065
  2. WARFARIN [Interacting]
     Active Substance: WARFARIN
     Indication: PRODUCT USED FOR UNKNOWN INDICATION
     Dosage: 20 MG/DAY (MONDAY, THURSDAY AND SATURDAY)
     Route: 065
  3. WARFARIN [Interacting]
     Active Substance: WARFARIN
     Dosage: 25 MG/DAY (TUESDAY, WEDNESDAY, FRIDAY AND SUNDAY)
     Route: 065
  4. LOPINAVIR/RITONAVIR [Suspect]
     Active Substance: LOPINAVIR\RITONAVIR
     Indication: HIV INFECTION
     Dosage: 200/50 MG; 2 TABLETS EVERY 12H
     Route: 065
     Dates: start: 200810
  5. EMTRICITABINE W/TENOFOVIR [Concomitant]
     Active Substance: EMTRICITABINE\TENOFOVIR DISOPROXIL
     Indication: HIV INFECTION
     Dosage: 245/200 MG; I TABLET PER DAY
     Route: 065

REACTIONS (3)
  - Haematoma [Recovered/Resolved]
  - Drug interaction [Recovering/Resolving]
  - Faeces discoloured [Unknown]
